FAERS Safety Report 18004674 (Version 1)
Quarter: 2020Q3

REPORT INFORMATION
  Report Type: Spontaneous
  Country: FR (occurrence: FR)
  Receive Date: 20200709
  Receipt Date: 20200709
  Transmission Date: 20201103
  Serious: Yes (Other)
  Sender: FDA-Public Use
  Company Number: FR-BAUSCH-BL-2020-019118

PATIENT
  Age: 25 Year
  Sex: Male

DRUGS (8)
  1. PROPOFOL. [Suspect]
     Active Substance: PROPOFOL
     Indication: GENERAL ANAESTHESIA
     Dosage: 1 IN TOTAL
     Route: 042
     Dates: start: 20200529, end: 20200529
  2. SUFENTA [Suspect]
     Active Substance: SUFENTANIL CITRATE
     Indication: GENERAL ANAESTHESIA
     Dosage: 1 IN TOTAL
     Route: 042
     Dates: start: 20200529, end: 20200529
  3. TRACRIUM [Suspect]
     Active Substance: ATRACURIUM BESYLATE
     Indication: GENERAL ANAESTHESIA
     Dosage: 1 IN TOTAL
     Route: 042
     Dates: start: 20200529, end: 20200529
  4. TADENAN [Concomitant]
     Active Substance: PYGEUM
     Indication: PRODUCT USED FOR UNKNOWN INDICATION
  5. LIDOCAINE. [Suspect]
     Active Substance: LIDOCAINE
     Indication: GENERAL ANAESTHESIA
     Dosage: 1 IN TOTAL
     Route: 065
     Dates: start: 20200529, end: 20200529
  6. DEXAMETHASONE. [Suspect]
     Active Substance: DEXAMETHASONE
     Indication: GENERAL ANAESTHESIA
     Dosage: 1 IN TOTAL
     Route: 042
     Dates: start: 20200529, end: 20200529
  7. CEFAZOLINE [Suspect]
     Active Substance: CEFAZOLIN SODIUM
     Indication: GENERAL ANAESTHESIA
     Dosage: 1 IN TOTAL
     Route: 042
     Dates: start: 20200529, end: 20200529
  8. TAMSULOSINE [Concomitant]
     Active Substance: TAMSULOSIN HYDROCHLORIDE
     Indication: PRODUCT USED FOR UNKNOWN INDICATION

REACTIONS (1)
  - Blood pressure decreased [Recovered/Resolved]

NARRATIVE: CASE EVENT DATE: 20200529
